FAERS Safety Report 22109199 (Version 1)
Quarter: 2023Q1

REPORT INFORMATION
  Report Type: Other
  Country: CA (occurrence: CA)
  Receive Date: 20230317
  Receipt Date: 20230317
  Transmission Date: 20230417
  Serious: Yes (Hospitalization)
  Sender: FDA-Public Use
  Company Number: CA-APOTEX-2023AP005041

PATIENT
  Age: 96 Year
  Sex: Male

DRUGS (2)
  1. DICLOFENAC [Suspect]
     Active Substance: DICLOFENAC
     Indication: Neck pain
     Dosage: 1.5 PERCENT, TID
     Route: 061
  2. DICLOFENAC [Suspect]
     Active Substance: DICLOFENAC
     Indication: Back pain

REACTIONS (2)
  - Haemoglobin decreased [Unknown]
  - Chronic gastrointestinal bleeding [Unknown]
